FAERS Safety Report 23586486 (Version 3)
Quarter: 2024Q2

REPORT INFORMATION
  Report Type: Other
  Country: US (occurrence: US)
  Receive Date: 20240301
  Receipt Date: 20240512
  Transmission Date: 20240715
  Serious: No
  Sender: FDA-Public Use
  Company Number: US-TRAVERE-2024TVT00206

PATIENT
  Sex: Male

DRUGS (1)
  1. FILSPARI [Suspect]
     Active Substance: SPARSENTAN
     Indication: IgA nephropathy
     Route: 048
     Dates: end: 20240328

REACTIONS (9)
  - Asthenia [None]
  - Dizziness [Unknown]
  - Headache [Unknown]
  - Back pain [Unknown]
  - Paraesthesia [Unknown]
  - Dyspnoea [None]
  - Weight increased [None]
  - Abdominal distension [None]
  - Dyspepsia [None]
